FAERS Safety Report 10360963 (Version 1)
Quarter: 2014Q3

REPORT INFORMATION
  Report Type: Spontaneous
  Country: US (occurrence: US)
  Receive Date: 20140804
  Receipt Date: 20140804
  Transmission Date: 20150326
  Serious: No
  Sender: FDA-Public Use
  Company Number: US-009507513-1406USA004439

PATIENT
  Sex: Female

DRUGS (2)
  1. DR. SCHOLLS EXTRA THICK CALLUS REMOVERS [Suspect]
     Active Substance: SALICYLIC ACID
     Dosage: UNK, UNKNOWN
     Route: 061
  2. DR. SCHOLLS EXTRA THICK CALLUS REMOVERS [Suspect]
     Active Substance: SALICYLIC ACID
     Indication: PRODUCT USED FOR UNKNOWN INDICATION
     Dosage: UNK, UNKNOWN
     Route: 061

REACTIONS (2)
  - Product adhesion issue [Unknown]
  - Incorrect drug administration duration [Unknown]
